FAERS Safety Report 6529944-1 (Version None)
Quarter: 2009Q4

REPORT INFORMATION
  Report Type: 
  Country: None (occurrence: None)
  Receive Date: 20091231
  Receipt Date: 20091217
  Transmission Date: 20100525
  Serious: Yes (Hospitalization, Other)
  Sender: FDA-Public Use
  Company Number: AUR-APL-2009-01619

PATIENT
  Age: 70 Year
  Sex: Female

DRUGS (2)
  1. LAMOTRIGINE [Suspect]
     Indication: EPILEPSY
     Dosage: 50MG, DAILY
  2. PHENOBARBITAL TAB [Suspect]
     Indication: EPILEPSY
     Dosage: 200MG, DAILY

REACTIONS (10)
  - C-REACTIVE PROTEIN INCREASED [None]
  - CONFUSIONAL STATE [None]
  - CYTOLYTIC HEPATITIS [None]
  - ELECTROENCEPHALOGRAM ABNORMAL [None]
  - ENANTHEMA [None]
  - HYPERTHERMIA [None]
  - LYMPHOPENIA [None]
  - PANCREATITIS [None]
  - RASH [None]
  - THROMBOCYTOPENIA [None]
